FAERS Safety Report 7263392-4 (Version None)
Quarter: 2011Q1

REPORT INFORMATION
  Report Type: 
  Country: None (occurrence: None)
  Receive Date: 20110130
  Receipt Date: 20101026
  Transmission Date: 20110831
  Serious: No
  Sender: FDA-Public Use
  Company Number: US-ABBOTT-10P-163-0681756-00

PATIENT
  Age: 52 Year
  Sex: Female

DRUGS (4)
  1. DARVOCET-N 100 [Concomitant]
     Indication: PAIN
  2. HUMIRA [Suspect]
     Indication: RHEUMATOID ARTHRITIS
     Dates: start: 20100601
  3. CATAPRES [Concomitant]
     Indication: HOT FLUSH
  4. PRAVASTATIN [Concomitant]
     Indication: BLOOD CHOLESTEROL INCREASED

REACTIONS (3)
  - OROPHARYNGEAL PAIN [None]
  - SINUSITIS [None]
  - CHILLS [None]
